FAERS Safety Report 8442705-1 (Version None)
Quarter: 2012Q2

REPORT INFORMATION
  Report Type: 
  Country: None (occurrence: None)
  Receive Date: 20120615
  Receipt Date: 20120613
  Transmission Date: 20120825
  Serious: Yes (Death)
  Sender: FDA-Public Use
  Company Number: BE-ABBOTT-06P-013-0347848-00

PATIENT
  Sex: Male

DRUGS (4)
  1. RANITIDINE [Concomitant]
     Indication: PRODUCT USED FOR UNKNOWN INDICATION
  2. FERROUS CARBONATE [Concomitant]
     Indication: PRODUCT USED FOR UNKNOWN INDICATION
  3. ADALIMUMAB [Suspect]
     Indication: CROHN'S DISEASE
     Dates: start: 20061005, end: 20061005
  4. ADALIMUMAB [Suspect]
     Dates: start: 20061019, end: 20061019

REACTIONS (1)
  - SUDDEN CARDIAC DEATH [None]
